FAERS Safety Report 9765890 (Version 1)
Quarter: 2013Q4

REPORT INFORMATION
  Report Type: Spontaneous
  Country: US (occurrence: US)
  Receive Date: 20131217
  Receipt Date: 20131217
  Transmission Date: 20140711
  Serious: No
  Sender: FDA-Public Use
  Company Number: US-BIOGENIDEC-2013BI116623

PATIENT
  Age: 37 Year
  Sex: Female

DRUGS (9)
  1. TECFIDERA [Suspect]
     Indication: RELAPSING-REMITTING MULTIPLE SCLEROSIS
     Dates: start: 20130730
  2. TECFIDERA [Suspect]
     Indication: RELAPSING-REMITTING MULTIPLE SCLEROSIS
     Dates: start: 2013
  3. NEURONTIN [Concomitant]
  4. NAPROXEN [Concomitant]
  5. TIZANIDINE [Concomitant]
  6. AMITRIPTYLINE [Concomitant]
  7. TRAMADOL [Concomitant]
  8. PROVIGIL [Concomitant]
  9. DEPO PROVERA [Concomitant]

REACTIONS (5)
  - Contusion [Unknown]
  - Nausea [Unknown]
  - Diarrhoea [Unknown]
  - Abdominal pain upper [Unknown]
  - Abdominal discomfort [Unknown]
